FAERS Safety Report 16681672 (Version 1)
Quarter: 2019Q3

REPORT INFORMATION
  Report Type: Spontaneous
  Country: US (occurrence: US)
  Receive Date: 20190807
  Receipt Date: 20190807
  Transmission Date: 20191004
  Serious: Yes (Hospitalization)
  Sender: FDA-Public Use
  Company Number: None

PATIENT
  Age: 18 Year
  Sex: Female
  Weight: 65.25 kg

DRUGS (1)
  1. FERRLECIT [Suspect]
     Active Substance: SODIUM FERRIC GLUCONATE COMPLEX
     Indication: IRON DEFICIENCY ANAEMIA
     Dosage: ?          OTHER FREQUENCY:ONCE A WEEK X 8;?
     Route: 041
     Dates: start: 20190723, end: 20190730

REACTIONS (6)
  - Maternal exposure during pregnancy [None]
  - Vomiting [None]
  - Infusion related reaction [None]
  - Urticaria [None]
  - Pregnancy [None]
  - Abdominal pain [None]

NARRATIVE: CASE EVENT DATE: 20190730
